FAERS Safety Report 4426548-1 (Version None)
Quarter: 2004Q3

REPORT INFORMATION
  Report Type: 
  Country: None (occurrence: None)
  Receive Date: 20040816
  Receipt Date: 20040805
  Transmission Date: 20050211
  Serious: Yes (Death, Hospitalization)
  Sender: FDA-Public Use
  Company Number: JP-JNJFOC-20040800651

PATIENT
  Sex: Female

DRUGS (14)
  1. DUROTEP [Suspect]
     Route: 062
  2. DUROTEP [Suspect]
     Indication: CANCER PAIN
     Route: 062
  3. TEGAFUR-GIMESTAT-OTASTAT POTASSIUM [Suspect]
     Route: 049
  4. CISPLATIN [Suspect]
     Route: 051
  5. DIFLUCORTOLONE VALERATE-LIDOCAINE [Concomitant]
     Route: 051
  6. MAGNESIUM OXIDE [Concomitant]
     Indication: CONSTIPATION
     Route: 049
  7. MUCOSTA [Concomitant]
     Indication: GASTRITIS
     Route: 049
  8. DICLOFENAC SODIUM [Concomitant]
     Route: 051
  9. DICLOFENAC SODIUM [Concomitant]
     Route: 051
  10. DICLOFENAC SODIUM [Concomitant]
     Route: 051
  11. DICLOFENAC SODIUM [Concomitant]
     Indication: CANCER PAIN
     Route: 051
  12. MS CONTIN [Concomitant]
     Route: 049
  13. MS CONTIN [Concomitant]
     Route: 049
  14. MS CONTIN [Concomitant]
     Indication: CANCER PAIN
     Route: 049

REACTIONS (2)
  - MALIGNANT NEOPLASM PROGRESSION [None]
  - PLATELET COUNT DECREASED [None]
